FAERS Safety Report 21561781 (Version 1)
Quarter: 2022Q4

REPORT INFORMATION
  Report Type: Spontaneous
  Country: US (occurrence: US)
  Receive Date: 20221107
  Receipt Date: 20221107
  Transmission Date: 20230113
  Serious: Yes (Other)
  Sender: FDA-Public Use
  Company Number: US-INCYTE CORPORATION-2022IN010585

PATIENT

DRUGS (1)
  1. JAKAFI [Suspect]
     Active Substance: RUXOLITINIB
     Indication: Alopecia areata
     Dosage: 10 MILLIGRAM, QD
     Route: 048
     Dates: start: 202107

REACTIONS (3)
  - Pulmonary fibrosis [Unknown]
  - Hepatic lesion [Unknown]
  - Off label use [Unknown]

NARRATIVE: CASE EVENT DATE: 20210701
